FAERS Safety Report 8440202-0 (Version None)
Quarter: 2012Q2

REPORT INFORMATION
  Report Type: 
  Country: None (occurrence: None)
  Receive Date: 20120615
  Receipt Date: 20120612
  Transmission Date: 20120825
  Serious: Yes (Death)
  Sender: FDA-Public Use
  Company Number: FR-ROCHE-1073802

PATIENT
  Age: 71 Year
  Sex: Male

DRUGS (5)
  1. MABTHERA [Suspect]
     Indication: CHRONIC LYMPHOCYTIC LEUKAEMIA
     Route: 042
     Dates: end: 20111201
  2. ALLOPURINOL [Concomitant]
     Route: 048
  3. PERMIXON [Concomitant]
     Route: 048
  4. RABEPRAZOLE SODIUM [Concomitant]
     Route: 048
     Dates: start: 20110901
  5. PROPRANOLOL [Concomitant]
     Route: 048

REACTIONS (3)
  - MENINGIOMA [None]
  - COMA [None]
  - LEUKOENCEPHALOMYELITIS [None]
